FAERS Safety Report 11340291 (Version 2)
Quarter: 2015Q3

REPORT INFORMATION
  Report Type: Spontaneous
  Country: US (occurrence: None)
  Receive Date: 20150803
  Receipt Date: 20150813
  Transmission Date: 20151125
  Serious: Yes (Hospitalization, Other)
  Sender: FDA-Public Use
  Company Number: ADR-2015-01436

PATIENT
  Age: 70 Year
  Sex: Male

DRUGS (3)
  1. UNKNOWN MEDICATIONS [Suspect]
     Active Substance: UNSPECIFIED INGREDIENT
  2. BACLOFEN INTRATHECAL [Suspect]
     Active Substance: BACLOFEN
     Indication: PAIN
  3. DILAUDID [Suspect]
     Active Substance: HYDROMORPHONE HYDROCHLORIDE

REACTIONS (15)
  - Device occlusion [None]
  - Spinal cord compression [None]
  - Asthenia [None]
  - Psychotic disorder [None]
  - Insomnia [None]
  - Cervical vertebral fracture [None]
  - Device failure [None]
  - Urinary tract infection [None]
  - Cerebrovascular accident [None]
  - Pulmonary embolism [None]
  - Pneumonia [None]
  - Confusional state [None]
  - Disturbance in attention [None]
  - Cervical spinal stenosis [None]
  - Fall [None]
